FAERS Safety Report 18280975 (Version 1)
Quarter: 2020Q3

REPORT INFORMATION
  Report Type: Report from Study
  Country: None (occurrence: US)
  Receive Date: 20200917
  Receipt Date: 20200917
  Transmission Date: 20201103
  Serious: Yes (Other)
  Sender: FDA-Public Use
  Company Number: US-ABBVIE-20K-163-3520139-00

PATIENT
  Age: 72 Year
  Sex: Male

DRUGS (2)
  1. HUMIRA [Suspect]
     Active Substance: ADALIMUMAB
     Indication: COLITIS ULCERATIVE
     Dosage: CITRATE FREE
     Route: 058
     Dates: end: 20200709
  2. HUMIRA [Suspect]
     Active Substance: ADALIMUMAB
     Dosage: CITRATE FREE
     Route: 058
     Dates: start: 2020

REACTIONS (6)
  - Deafness unilateral [Recovered/Resolved]
  - Rash macular [Not Recovered/Not Resolved]
  - Influenza [Unknown]
  - Anxiety [Unknown]
  - COVID-19 [Recovered/Resolved]
  - VIIIth nerve injury [Unknown]

NARRATIVE: CASE EVENT DATE: 2019
